FAERS Safety Report 5615004-0 (Version None)
Quarter: 2008Q1

REPORT INFORMATION
  Report Type: 
  Country: None (occurrence: None)
  Receive Date: 20080206
  Receipt Date: 20080128
  Transmission Date: 20080703
  Serious: Yes (Other)
  Sender: FDA-Public Use
  Company Number: PHBS2007JP20827

PATIENT
  Age: 44 Year
  Sex: Female

DRUGS (1)
  1. VOLTAREN [Suspect]
     Indication: ANAL FISSURE
     Dosage: UNK, UNK
     Route: 054
     Dates: start: 20040101, end: 20040109

REACTIONS (1)
  - ANAL ULCER [None]
